FAERS Safety Report 6315732-8 (Version None)
Quarter: 2009Q3

REPORT INFORMATION
  Report Type: 
  Country: None (occurrence: None)
  Receive Date: 20090819
  Receipt Date: 20080818
  Transmission Date: 20100115
  Serious: No
  Sender: FDA-Public Use
  Company Number: US-BAUSCH-2008BL003576

PATIENT
  Age: 82 Year
  Sex: Male

DRUGS (4)
  1. CROMOLYN SODIUM [Suspect]
     Indication: PROPHYLAXIS
     Route: 045
     Dates: start: 20050101
  2. LUMIGAN [Concomitant]
     Indication: GLAUCOMA
     Route: 047
     Dates: start: 20070801
  3. ALPHAGAN [Concomitant]
     Indication: GLAUCOMA
     Route: 047
     Dates: start: 20070801
  4. COSOPT [Concomitant]
     Indication: GLAUCOMA
     Route: 047
     Dates: start: 20070801

REACTIONS (1)
  - DRY EYE [None]
